FAERS Safety Report 14318433 (Version 2)
Quarter: 2017Q4

REPORT INFORMATION
  Report Type: Spontaneous
  Country: JP (occurrence: JP)
  Receive Date: 20171222
  Receipt Date: 20171228
  Transmission Date: 20180321
  Serious: Yes (Hospitalization, Other)
  Sender: FDA-Public Use
  Company Number: JP-GLAXOSMITHKLINE-JP2017JPN195433

PATIENT
  Age: 84 Year
  Sex: Male

DRUGS (2)
  1. AVOLVE [Suspect]
     Active Substance: DUTASTERIDE
     Dosage: UNK
     Route: 048
  2. TAMSULOSIN HYDROCHLORIDE. [Concomitant]
     Active Substance: TAMSULOSIN HYDROCHLORIDE
     Dosage: UNK

REACTIONS (4)
  - Atrial fibrillation [Unknown]
  - Pneumothorax [Unknown]
  - Dysphagia [Unknown]
  - Cerebral infarction [Unknown]
